FAERS Safety Report 9924880 (Version 2)
Quarter: 2014Q1

REPORT INFORMATION
  Report Type: Spontaneous
  Country: US (occurrence: US)
  Receive Date: 20140226
  Receipt Date: 20140301
  Transmission Date: 20141002
  Serious: Yes (Death)
  Sender: FDA-Public Use
  Company Number: US-ROCHE-1356068

PATIENT
  Age: 77 Year
  Sex: Female
  Weight: 227 kg

DRUGS (1)
  1. XELODA [Suspect]
     Indication: HEPATOBILIARY CANCER
     Route: 048
     Dates: start: 20140131

REACTIONS (1)
  - Death [Fatal]
